FAERS Safety Report 24365280 (Version 1)
Quarter: 2024Q3

REPORT INFORMATION
  Report Type: Spontaneous
  Country: US (occurrence: US)
  Receive Date: 20240926
  Receipt Date: 20240926
  Transmission Date: 20241017
  Serious: Yes (Life-Threatening, Hospitalization, Other)
  Sender: HIKMA
  Company Number: US-MLMSERVICE-20240912-PI188223-00145-1

PATIENT
  Age: 19 Month
  Sex: Male
  Weight: 11.5 kg

DRUGS (4)
  1. FENTANYL [Suspect]
     Active Substance: FENTANYL\FENTANYL CITRATE
     Indication: Sedative therapy
     Dosage: UNK
     Route: 065
  2. DEXMEDETOMIDINE [Concomitant]
     Active Substance: DEXMEDETOMIDINE
     Indication: Sedative therapy
     Dosage: UNK
     Route: 065
  3. MIDAZOLAM [Concomitant]
     Active Substance: MIDAZOLAM
     Indication: Sedative therapy
     Dosage: UNK
     Route: 065
  4. MIDAZOLAM [Concomitant]
     Active Substance: MIDAZOLAM
     Dosage: SINGLE DOSE
     Route: 065

REACTIONS (1)
  - Mental status changes [Recovering/Resolving]
